FAERS Safety Report 5405685-9 (Version None)
Quarter: 2007Q3

REPORT INFORMATION
  Report Type: 
  Country: None (occurrence: None)
  Receive Date: 20070806
  Receipt Date: 20070730
  Transmission Date: 20080115
  Serious: Yes (Other)
  Sender: FDA-Public Use
  Company Number: PHBS2007KP12684

PATIENT
  Age: 60 Year
  Sex: Female

DRUGS (5)
  1. HYDROCHLOROTHIAZIDE [Suspect]
  2. SERTINDOLE [Suspect]
     Dosage: 4 MG/DAY
  3. SERTINDOLE [Suspect]
     Dosage: 8 MG/DAY
  4. HALOPERIDOL [Concomitant]
     Dosage: 10 MG/DAY
  5. LORAZEPAM [Suspect]

REACTIONS (3)
  - CONVULSION [None]
  - HYPOKALAEMIA [None]
  - LOSS OF CONSCIOUSNESS [None]
